FAERS Safety Report 23586326 (Version 1)
Quarter: 2024Q1

REPORT INFORMATION
  Report Type: Spontaneous
  Country: US (occurrence: US)
  Receive Date: 20240301
  Receipt Date: 20240301
  Transmission Date: 20240410
  Serious: No
  Sender: FDA-Public Use
  Company Number: US-BAYER-2024A028606

PATIENT
  Age: 3 Year
  Sex: Male
  Weight: 14 kg

DRUGS (2)
  1. CHILDREN CLARITIN ALLERGY [Suspect]
     Active Substance: LORATADINE
     Dosage: 3.7 ML
     Route: 048
  2. VITAMINS [ASCORBIC ACID;ERGOCALCIFEROL;NICOTINAMIDE;RETINOL;RIBOFL [Concomitant]
     Dosage: UNK

REACTIONS (1)
  - Incorrect dose administered [Unknown]
